FAERS Safety Report 4725762-5 (Version None)
Quarter: 2005Q3

REPORT INFORMATION
  Report Type: 
  Country: None (occurrence: None)
  Receive Date: 20050727
  Receipt Date: 20050719
  Transmission Date: 20060218
  Serious: Yes (Hospitalization)
  Sender: FDA-Public Use
  Company Number: 200512425FR

PATIENT
  Age: 73 Year
  Sex: Female

DRUGS (11)
  1. LASIX [Suspect]
     Route: 048
     Dates: end: 20050528
  2. IMOVANE [Concomitant]
     Route: 048
  3. TRANXENE [Concomitant]
  4. ALDACTONE [Concomitant]
     Route: 048
  5. SEROPRAM [Concomitant]
     Route: 048
  6. CARDENSIEL [Concomitant]
     Route: 048
  7. COVERSYL [Concomitant]
     Route: 048
  8. LEVOTHYROX [Concomitant]
     Route: 048
  9. OMEPRAZOLE [Concomitant]
     Route: 048
  10. FORLAX [Concomitant]
     Route: 048
  11. ACETAMINOPHEN [Concomitant]

REACTIONS (2)
  - FALL [None]
  - HYPONATRAEMIA [None]
